FAERS Safety Report 6532592-0 (Version None)
Quarter: 2010Q1

REPORT INFORMATION
  Report Type: 
  Country: None (occurrence: None)
  Receive Date: 20100111
  Receipt Date: 20100105
  Transmission Date: 20100710
  Serious: Yes (Other)
  Sender: FDA-Public Use
  Company Number: US-ROCHE-677872

PATIENT
  Sex: Female
  Weight: 48.5 kg

DRUGS (4)
  1. BONIVA [Suspect]
     Indication: OSTEOPENIA
     Route: 048
  2. ASPIRIN [Concomitant]
  3. SYNTHROID [Concomitant]
  4. CALCIUM [Concomitant]

REACTIONS (1)
  - PARATHYROID TUMOUR [None]
